FAERS Safety Report 7607169-6 (Version None)
Quarter: 2011Q3

REPORT INFORMATION
  Report Type: 
  Country: None (occurrence: None)
  Receive Date: 20110713
  Receipt Date: 20110704
  Transmission Date: 20111222
  Serious: Yes (Hospitalization, Other)
  Sender: FDA-Public Use
  Company Number: DE-ELI_LILLY_AND_COMPANY-DE201104000667

PATIENT
  Age: 75 Year
  Sex: Male

DRUGS (3)
  1. FORTEO [Suspect]
     Indication: OSTEOPOROSIS
     Dosage: UNK UNK, QD
     Route: 058
     Dates: start: 20091019, end: 20110523
  2. CALCILAC [Concomitant]
  3. PREDNISOLONE [Concomitant]

REACTIONS (4)
  - NEOPLASM MALIGNANT [None]
  - SPINAL FRACTURE [None]
  - METASTASIS [None]
  - HOSPITALISATION [None]
